FAERS Safety Report 15111822 (Version 2)
Quarter: 2018Q3

REPORT INFORMATION
  Report Type: Report from Study
  Country: CA (occurrence: CA)
  Receive Date: 20180705
  Receipt Date: 20180821
  Transmission Date: 20181010
  Serious: Yes (Other)
  Sender: FDA-Public Use
  Company Number: CA-JNJFOC-20180702199

PATIENT
  Sex: Female
  Weight: 63.5 kg

DRUGS (4)
  1. REMICADE [Suspect]
     Active Substance: INFLIXIMAB
     Indication: COLITIS ULCERATIVE
     Dosage: STRENGTH = 100 MG
     Route: 042
     Dates: start: 20180129
  2. REMICADE [Suspect]
     Active Substance: INFLIXIMAB
     Indication: CROHN^S DISEASE
     Dosage: RECEIVED 6TH INFUSION 1000 MG ONCE EVERY 6 WEEKS ON 30?JUN?2018
     Route: 042
     Dates: start: 2018
  3. REMICADE [Suspect]
     Active Substance: INFLIXIMAB
     Indication: CROHN^S DISEASE
     Dosage: STRENGTH = 100 MG
     Route: 042
     Dates: start: 20180129
  4. REMICADE [Suspect]
     Active Substance: INFLIXIMAB
     Indication: COLITIS ULCERATIVE
     Dosage: RECEIVED 6TH INFUSION 1000 MG ONCE EVERY 6 WEEKS ON 30?JUN?2018
     Route: 042
     Dates: start: 2018

REACTIONS (6)
  - Colitis ulcerative [Recovering/Resolving]
  - Tuberculosis [Not Recovered/Not Resolved]
  - Crohn^s disease [Recovering/Resolving]
  - Product use issue [Unknown]
  - Clostridium difficile infection [Recovering/Resolving]
  - Off label use [Unknown]

NARRATIVE: CASE EVENT DATE: 2018
